FAERS Safety Report 8057409-7 (Version None)
Quarter: 2012Q1

REPORT INFORMATION
  Report Type: 
  Country: None (occurrence: None)
  Receive Date: 20120119
  Receipt Date: 20120112
  Transmission Date: 20120608
  Serious: Yes (Hospitalization)
  Sender: FDA-Public Use
  Company Number: US-RB-036438-12

PATIENT
  Age: 57 Year
  Sex: Male

DRUGS (2)
  1. BUPRENORPHINE [Suspect]
     Indication: PAIN MANAGEMENT
     Dosage: UNKNOWN
     Route: 065
  2. SUBUTEX [Suspect]
     Indication: PAIN MANAGEMENT
     Dosage: UNKNOWN
     Route: 065

REACTIONS (3)
  - THERAPEUTIC RESPONSE DECREASED [None]
  - BACK DISORDER [None]
  - OFF LABEL USE [None]
